APPROVED DRUG PRODUCT: OFLOXACIN
Active Ingredient: OFLOXACIN
Strength: 40MG/ML
Dosage Form/Route: INJECTABLE;INJECTION
Application: A075762 | Product #001
Applicant: BEDFORD LABORATORIES DIV BEN VENUE LABORATORIES INC
Approved: Jan 16, 2002 | RLD: No | RS: No | Type: DISCN